FAERS Safety Report 10911324 (Version 1)
Quarter: 2015Q1

REPORT INFORMATION
  Report Type: Report from Study
  Country: CH (occurrence: CH)
  Receive Date: 20150313
  Receipt Date: 20150313
  Transmission Date: 20150721
  Serious: Yes (Other)
  Sender: FDA-Public Use
  Company Number: CH-ROCHE-1549878

PATIENT
  Age: 68 Year

DRUGS (5)
  1. RITUXIMAB [Suspect]
     Active Substance: RITUXIMAB
     Indication: EXTRANODAL MARGINAL ZONE B-CELL LYMPHOMA (MALT TYPE)
     Dosage: MOST RECENT DOSE PRIOR TO AE: 03/NOV/2005
     Route: 042
     Dates: start: 20051103
  2. ULCEX [Concomitant]
     Route: 048
     Dates: start: 20050831, end: 20051130
  3. VALPINAX [Concomitant]
     Route: 048
     Dates: start: 20050906, end: 20051130
  4. CHLORAMBUCIL [Suspect]
     Active Substance: CHLORAMBUCIL
     Indication: EXTRANODAL MARGINAL ZONE B-CELL LYMPHOMA (MALT TYPE)
     Dosage: MOST RECENT DOSE PRIOR TO AE: 16/NOV/2005
     Route: 048
     Dates: start: 20051103
  5. MONURIL [Concomitant]
     Active Substance: FOSFOMYCIN SODIUM
     Route: 048
     Dates: start: 20051103, end: 20051109

REACTIONS (2)
  - Aspartate aminotransferase increased [Recovered/Resolved]
  - Alanine aminotransferase increased [Recovered/Resolved]

NARRATIVE: CASE EVENT DATE: 20051130
